FAERS Safety Report 10564710 (Version 1)
Quarter: 2014Q4

REPORT INFORMATION
  Report Type: Spontaneous
  Country: TR (occurrence: TR)
  Receive Date: 20141105
  Receipt Date: 20141105
  Transmission Date: 20150529
  Serious: Yes (Hospitalization)
  Sender: FDA-Public Use
  Company Number: PHHY2014TR140829

PATIENT
  Age: 18 Year
  Sex: Female

DRUGS (1)
  1. FLUOXETINE [Suspect]
     Active Substance: FLUOXETINE\FLUOXETINE HYDROCHLORIDE
     Indication: MAJOR DEPRESSION
     Dosage: 20 MG, QD
     Route: 065

REACTIONS (8)
  - Fatigue [Unknown]
  - Confusional state [Unknown]
  - Dissociative identity disorder [Unknown]
  - Asthenia [Unknown]
  - Toxicity to various agents [Unknown]
  - Suicide attempt [Unknown]
  - Loss of consciousness [Recovered/Resolved]
  - Overdose [Unknown]
